FAERS Safety Report 25466400 (Version 1)
Quarter: 2025Q2

REPORT INFORMATION
  Report Type: Spontaneous
  Country: AU (occurrence: AU)
  Receive Date: 20250623
  Receipt Date: 20250623
  Transmission Date: 20250717
  Serious: Yes (Other)
  Sender: SANOFI AVENTIS
  Company Number: AU-SA-2025SA175116

PATIENT
  Age: 36 Year
  Sex: Male

DRUGS (4)
  1. LEFLUNOMIDE [Suspect]
     Active Substance: LEFLUNOMIDE
  2. LEUCOVORIN CALCIUM [Suspect]
     Active Substance: LEUCOVORIN CALCIUM
  3. FLUOROURACIL [Suspect]
     Active Substance: FLUOROURACIL
  4. SUNITINIB [Suspect]
     Active Substance: SUNITINIB

REACTIONS (4)
  - Malignant ascites [Unknown]
  - Metastases to central nervous system [Unknown]
  - Pancreatic neuroendocrine tumour metastatic [Unknown]
  - Product use in unapproved indication [Unknown]
